FAERS Safety Report 6507348-5 (Version None)
Quarter: 2009Q4

REPORT INFORMATION
  Report Type: 
  Country: None (occurrence: None)
  Receive Date: 20091221
  Receipt Date: 20091209
  Transmission Date: 20100525
  Serious: Yes (Hospitalization)
  Sender: FDA-Public Use
  Company Number: SE-PFIZER INC-2009307629

PATIENT
  Age: 74 Year

DRUGS (10)
  1. PREDNISOLONE [Suspect]
     Indication: POLYMYALGIA RHEUMATICA
     Dosage: 5 MG, 2X/DAY
     Route: 048
     Dates: start: 20091016, end: 20091109
  2. CIPROFLOXACIN [Suspect]
     Indication: ANAL ABSCESS
     Dosage: 1 G, DAILY
     Route: 048
     Dates: start: 20091009, end: 20091023
  3. FLAGYL [Concomitant]
     Indication: ANAL ABSCESS
     Dosage: UNK
     Dates: start: 20091009, end: 20091023
  4. OXYNORM [Concomitant]
     Dosage: UNK
  5. SIMVASTATIN [Concomitant]
     Dosage: UNK
  6. OMEPRAZOLE [Concomitant]
     Dosage: UNK
  7. ALENDRONIC ACID [Concomitant]
     Dosage: UNK
  8. ATENOLOL ^NORDIC^ [Concomitant]
     Dosage: UNK
  9. TROMBYL [Concomitant]
     Dosage: UNK
  10. CALCICHEW-D3 [Concomitant]
     Dosage: UNK

REACTIONS (1)
  - TENDON RUPTURE [None]
